FAERS Safety Report 8613017 (Version 2)
Quarter: 2014Q1

REPORT INFORMATION
  Report Type: Spontaneous
  Country: US (occurrence: None)
  Receive Date: 20120323
  Receipt Date: 20130305
  Transmission Date: 20141002
  Serious: Yes (Hospitalization)
  Sender: FDA-Public Use
  Company Number: 163-21880-11120912

PATIENT
  Age: 58 Year
  Sex: Female

DRUGS (6)
  1. REVLIMID [Suspect]
     Indication: PLASMA CELL MYELOMA
     Dosage: 25 MG, 1 IN 1 D, PO
     Route: 048
     Dates: start: 201110
  2. CARFILZOMIB (CARFILZOMIB) (INJECTION FOR INFUSION) [Concomitant]
  3. DEXAMETHASONE  (DEXAMETHASONE) (UNKNOWN) [Concomitant]
  4. LISINOPRIL (LISINOPRIL) (UNKNOWN) (LISINOPRIL) [Concomitant]
  5. VALTREX (VALCICLOVIR HYDROCHLORIDE) (UNKNOWN) [Concomitant]
  6. LOVENOX (HEPARIN-FRACTION, SODIUM SALT) (UNKNOWN) [Concomitant]

REACTIONS (2)
  - Fatigue [None]
  - Pyrexia [None]
